FAERS Safety Report 7542092-7 (Version None)
Quarter: 2011Q2

REPORT INFORMATION
  Report Type: 
  Country: None (occurrence: None)
  Receive Date: 20110524
  Receipt Date: 20110328
  Transmission Date: 20111010
  Serious: No
  Sender: FDA-Public Use
  Company Number: 030179

PATIENT
  Sex: Male
  Weight: 70.3 kg

DRUGS (8)
  1. ADVAIR DISKUS 100/50 [Concomitant]
  2. ENDODAN /00953301/ [Concomitant]
  3. CIMZIA [Suspect]
     Indication: CROHN'S DISEASE
     Dosage: (400 MG 1X/4 WEEKS SUBCUTANEOUS)
     Route: 058
     Dates: start: 20100601, end: 20110328
  4. CALCIUM CARBONATE [Concomitant]
  5. VITAMIN D [Concomitant]
  6. ADVIL LIQUI-GELS [Concomitant]
  7. LOMOTIL /00034001/ [Concomitant]
  8. VITAMIN B12 NOS [Concomitant]

REACTIONS (4)
  - DYSPNOEA EXERTIONAL [None]
  - FATIGUE [None]
  - CHEST PAIN [None]
  - RASH [None]
